FAERS Safety Report 4667503-6 (Version None)
Quarter: 2005Q2

REPORT INFORMATION
  Report Type: 
  Country: None (occurrence: None)
  Receive Date: 20050519
  Receipt Date: 20050519
  Transmission Date: 20051028
  Serious: Yes (Hospitalization)
  Sender: FDA-Public Use
  Company Number: None

PATIENT
  Age: 73 Year
  Sex: Male
  Weight: 49.8957 kg

DRUGS (2)
  1. WARFARIN     2MG [Suspect]
     Indication: PULMONARY EMBOLISM
     Dosage: 2MG   DAILY   ORAL
     Route: 048
     Dates: start: 20030726, end: 20050517
  2. WARFARIN     2.5MG [Suspect]
     Indication: PULMONARY EMBOLISM
     Dosage: 2.5MG   DAILY   ORAL
     Route: 048
     Dates: start: 20030726, end: 20050517

REACTIONS (4)
  - ARTHRALGIA [None]
  - CACHEXIA [None]
  - CHROMATURIA [None]
  - INTERNATIONAL NORMALISED RATIO INCREASED [None]
